FAERS Safety Report 6219261-1 (Version None)
Quarter: 2009Q2

REPORT INFORMATION
  Report Type: 
  Country: None (occurrence: None)
  Receive Date: 20090609
  Receipt Date: 20071129
  Transmission Date: 20091009
  Serious: Yes (Other)
  Sender: FDA-Public Use
  Company Number: US-ASTRAZENECA-2007UW11459

PATIENT
  Age: 617 Month
  Sex: Female
  Weight: 98.9 kg

DRUGS (18)
  1. SEROQUEL [Suspect]
     Indication: BIPOLAR DISORDER
     Route: 048
     Dates: start: 20030301, end: 20060614
  2. SEROQUEL [Suspect]
     Indication: ANXIETY
     Route: 048
     Dates: start: 20030301, end: 20060614
  3. SEROQUEL [Suspect]
     Dosage: 100-200 MG
     Route: 048
     Dates: start: 20050602
  4. SEROQUEL [Suspect]
     Dosage: 100-200 MG
     Route: 048
     Dates: start: 20050602
  5. DIAZEPAM [Concomitant]
     Dates: start: 20030801
  6. PREMARIN [Concomitant]
     Dates: start: 20031216
  7. PREMARIN [Concomitant]
     Dates: start: 20041217
  8. TRIMOX [Concomitant]
     Dates: start: 20040216
  9. BEXTRA [Concomitant]
     Dates: start: 20040625
  10. CARBAMAZEPINE [Concomitant]
     Dates: start: 20041201
  11. RISPERDAL [Concomitant]
     Dates: start: 20041201
  12. EFFEXOR XR [Concomitant]
     Dates: start: 20041201
  13. CITALOPRAM HYDROBROMIDE [Concomitant]
     Dates: start: 20041203
  14. TIZANIDINE HCL [Concomitant]
     Dates: start: 20050114
  15. ESTRADERM [Concomitant]
     Dates: start: 20050428
  16. FUROSEMIDE [Concomitant]
     Dates: start: 20050602
  17. HYDROCODONE BITARTRATE + ACETAMINOPHEN [Concomitant]
     Dosage: 10//325 MG
     Dates: start: 20050614
  18. DICYCLOMINE [Concomitant]
     Dates: start: 20050818

REACTIONS (4)
  - DIABETES MELLITUS INADEQUATE CONTROL [None]
  - DIABETIC NEUROPATHY [None]
  - METABOLIC SYNDROME [None]
  - TYPE 2 DIABETES MELLITUS [None]
